FAERS Safety Report 4550281-9 (Version None)
Quarter: 2005Q1

REPORT INFORMATION
  Report Type: 
  Country: None (occurrence: None)
  Receive Date: 20050110
  Receipt Date: 20041231
  Transmission Date: 20050727
  Serious: Yes (Other)
  Sender: FDA-Public Use
  Company Number: HQWYE909320OCT04

PATIENT
  Sex: Male

DRUGS (3)
  1. EFFEXOR XR [Suspect]
     Dosage: 1 DOSE 1X PER 1 TOT
  2. ALCOHOL (ETHANOL) [Suspect]
  3. NORFLEX [Suspect]

REACTIONS (7)
  - AGGRESSION [None]
  - ALCOHOL USE [None]
  - AMNESIA [None]
  - INJURY [None]
  - INTENTIONAL MISUSE [None]
  - PHYSICAL ASSAULT [None]
  - SELF-MEDICATION [None]
